FAERS Safety Report 8523603-1 (Version None)
Quarter: 2012Q3

REPORT INFORMATION
  Report Type: 
  Country: None (occurrence: None)
  Receive Date: 20120720
  Receipt Date: 20120711
  Transmission Date: 20120928
  Serious: Yes (Other)
  Sender: FDA-Public Use
  Company Number: US-JNJFOC-20120705711

PATIENT
  Sex: Female
  Weight: 72.58 kg

DRUGS (4)
  1. ^VITAMINS^ (NOS) [Concomitant]
  2. REMICADE [Suspect]
     Route: 042
     Dates: start: 20110901
  3. PREMEDICATION [Concomitant]
     Indication: PREMEDICATION
     Dates: start: 20120412, end: 20120412
  4. REMICADE [Suspect]
     Indication: CROHN'S DISEASE
     Dosage: 4TH INFUSION
     Route: 042
     Dates: start: 20120412, end: 20120412

REACTIONS (2)
  - ANAPHYLACTIC REACTION [None]
  - INFUSION RELATED REACTION [None]
